FAERS Safety Report 6776332-9 (Version None)
Quarter: 2010Q2

REPORT INFORMATION
  Report Type: 
  Country: None (occurrence: None)
  Receive Date: 20100615
  Receipt Date: 20100604
  Transmission Date: 20101027
  Serious: Yes (Other)
  Sender: FDA-Public Use
  Company Number: 013410

PATIENT
  Sex: Female

DRUGS (1)
  1. LEVETIRACETAM (KEPPRA) [Suspect]
     Dosage: 750 MG ORAL
     Route: 048
     Dates: start: 20090101

REACTIONS (2)
  - DYSPNOEA [None]
  - HYPOCHROMIC ANAEMIA [None]
